FAERS Safety Report 4873088-1 (Version None)
Quarter: 2005Q4

REPORT INFORMATION
  Report Type: 
  Country: None (occurrence: None)
  Receive Date: 20051201
  Receipt Date: 20050816
  Transmission Date: 20060501
  Serious: No
  Sender: FDA-Public Use
  Company Number: 2005PV001238

PATIENT
  Age: 71 Year
  Sex: Female
  Weight: 94.8018 kg

DRUGS (13)
  1. BYETTA [Suspect]
     Indication: DIABETES MELLITUS NON-INSULIN-DEPENDENT
     Dosage: 5 MCG; BID; SC
     Route: 058
     Dates: start: 20050802, end: 20050913
  2. GLUCOVANCE [Concomitant]
  3. BENICAR [Concomitant]
  4. SYNTHROID [Concomitant]
  5. NEXIUM [Concomitant]
  6. AMBIEN [Concomitant]
  7. TRAZODONE [Concomitant]
  8. VYTORIN [Concomitant]
  9. VITAMIN B-12 [Concomitant]
  10. ADVIL [Concomitant]
  11. HUMALOG [Concomitant]
  12. AXID [Concomitant]
  13. HUMALOG MIX 75/25 [Concomitant]

REACTIONS (9)
  - ABDOMINAL PAIN UPPER [None]
  - BLOOD GLUCOSE DECREASED [None]
  - ERUCTATION [None]
  - FEAR [None]
  - FEELING COLD [None]
  - FEELING JITTERY [None]
  - FLATULENCE [None]
  - NAUSEA [None]
  - PALPITATIONS [None]
